FAERS Safety Report 5931508-5 (Version None)
Quarter: 2008Q4

REPORT INFORMATION
  Report Type: 
  Country: None (occurrence: None)
  Receive Date: 20081027
  Receipt Date: 20081022
  Transmission Date: 20090506
  Serious: Yes (Congenital Anomaly)
  Sender: FDA-Public Use
  Company Number: A0753056B

PATIENT

DRUGS (2)
  1. PAXIL [Suspect]
     Indication: SLEEP DISORDER
     Dosage: 20MG PER DAY
     Dates: start: 20071201, end: 20081013
  2. NO CONCURRENT MEDICATION [Concomitant]

REACTIONS (2)
  - CONGENITAL ANOMALY [None]
  - DRUG EXPOSURE DURING PREGNANCY [None]
